FAERS Safety Report 17836156 (Version 3)
Quarter: 2020Q3

REPORT INFORMATION
  Report Type: Report from Study
  Country: US (occurrence: US)
  Receive Date: 20200528
  Receipt Date: 20200813
  Transmission Date: 20201103
  Serious: Yes (Hospitalization, Other)
  Sender: FDA-Public Use
  Company Number: US-GILEAD-2020-0468397

PATIENT
  Age: 70 Year
  Sex: Male

DRUGS (40)
  1. GRAPE SEED [VITIS VINIFERA] [Concomitant]
  2. PREVAGEN [APOAEQUORIN;COLECALCIFEROL] [Concomitant]
  3. FLONASE [Concomitant]
     Active Substance: FLUTICASONE PROPIONATE
  4. ADVAIR HFA [Concomitant]
     Active Substance: FLUTICASONE PROPIONATE\SALMETEROL XINAFOATE
  5. MAGNESIUM PLUS [MAGNESIUM] [Concomitant]
  6. ZINC. [Concomitant]
     Active Substance: ZINC
  7. MUCINEX [Concomitant]
     Active Substance: GUAIFENESIN
  8. TYLENOL [Concomitant]
     Active Substance: ACETAMINOPHEN
  9. VITAMIN C [Concomitant]
     Active Substance: ASCORBIC ACID
  10. TURMERIC [CURCUMA LONGA] [Concomitant]
     Active Substance: HERBALS\TURMERIC
  11. NUCALA [Concomitant]
     Active Substance: MEPOLIZUMAB
  12. ALBUTEROL SULFATE. [Concomitant]
     Active Substance: ALBUTEROL SULFATE
  13. B?COMPLEX [VITAMIN B COMPLEX] [Concomitant]
  14. GABAPENTIN. [Concomitant]
     Active Substance: GABAPENTIN
  15. BASIL FES [Concomitant]
     Active Substance: BASIL\HERBALS
  16. IPRATROPIUM BROMIDE. [Concomitant]
     Active Substance: IPRATROPIUM BROMIDE
  17. VIAGRA [SILDENAFIL] [Concomitant]
  18. TEMAZEPAM. [Concomitant]
     Active Substance: TEMAZEPAM
  19. SELENIUM [Concomitant]
     Active Substance: SELENIUM
  20. FINASTERIDE. [Concomitant]
     Active Substance: FINASTERIDE
  21. GREEN TEA [CAMELLIA SINENSIS] [Concomitant]
  22. SPIRIVA [Concomitant]
     Active Substance: TIOTROPIUM BROMIDE MONOHYDRATE
  23. VITAMIN B12 [VITAMIN B12 NOS] [Concomitant]
     Active Substance: CYANOCOBALAMIN
  24. SAW PALMETTO [SERENOA REPENS] [Concomitant]
  25. GARLIC [ALLIUM SATIVUM] [Concomitant]
     Active Substance: GARLIC
  26. SIMVASTATIN. [Concomitant]
     Active Substance: SIMVASTATIN
  27. BACLOFEN. [Concomitant]
     Active Substance: BACLOFEN
  28. AZTREONAM LYSINE [Suspect]
     Active Substance: AZTREONAM LYSINE
     Indication: PSEUDOMONAS INFECTION
  29. MONTELUKAST SODIUM. [Concomitant]
     Active Substance: MONTELUKAST SODIUM
  30. VITAMIN D [COLECALCIFEROL] [Concomitant]
     Active Substance: CHOLECALCIFEROL
  31. ASPIRIN [ACETYLSALICYLIC ACID] [Concomitant]
     Active Substance: ASPIRIN
  32. BUDESONIDE. [Concomitant]
     Active Substance: BUDESONIDE
  33. TOBRAMYCIN. [Concomitant]
     Active Substance: TOBRAMYCIN
  34. CHONDROITIN SULFATE SODIUM [Concomitant]
     Active Substance: CHONDROITIN SULFATE (CHICKEN)
  35. GINGER [ZINGIBER OFFICINALE] [Concomitant]
     Active Substance: GINGER
  36. GLUCOSAMINE [Concomitant]
     Active Substance: GLUCOSAMINE
  37. AZTREONAM LYSINE [Suspect]
     Active Substance: AZTREONAM LYSINE
     Indication: ASTHMA
     Dosage: 75 MG, TID, 28 DAYS ON AND 28 DAYS OFF
     Route: 055
     Dates: start: 20191211
  38. FASENRA [Concomitant]
     Active Substance: BENRALIZUMAB
     Dosage: INJECT 1 PEN (30 MG) UNDER THE SKIN AT WEEK 8 THEN EVERY 8 WEEKS THEREAFTER
  39. TAMSULOSIN HYDROCHLORIDE. [Concomitant]
     Active Substance: TAMSULOSIN HYDROCHLORIDE
  40. BIOTIN [Concomitant]
     Active Substance: BIOTIN

REACTIONS (13)
  - Decreased activity [Unknown]
  - Dyspnoea [Unknown]
  - Pseudomonas infection [Unknown]
  - Asthma [Unknown]
  - Drug ineffective [Recovered/Resolved]
  - Cough [Unknown]
  - Off label use [Not Recovered/Not Resolved]
  - Cystic fibrosis [Unknown]
  - Wheezing [Unknown]
  - Pneumonia [Not Recovered/Not Resolved]
  - Cytomegalovirus infection [Unknown]
  - Lung disorder [Unknown]
  - Chest discomfort [Unknown]

NARRATIVE: CASE EVENT DATE: 20191211
